FAERS Safety Report 9647078 (Version 1)
Quarter: 2013Q4

REPORT INFORMATION
  Report Type: Spontaneous
  Country: US (occurrence: US)
  Receive Date: 20131027
  Receipt Date: 20131027
  Transmission Date: 20140711
  Serious: Yes (Other)
  Sender: FDA-Public Use
  Company Number: US-NAPPMUNDI-USA-2013-0104351

PATIENT
  Sex: Male

DRUGS (2)
  1. OXYCONTIN (NDA 22-272) [Suspect]
     Indication: PRODUCT USED FOR UNKNOWN INDICATION
     Dosage: 60 MG, UNK
     Route: 048
  2. OXYCONTIN (NDA 22-272) [Suspect]
     Dosage: 80 MG, UNK
     Route: 048

REACTIONS (3)
  - Drug dependence [Unknown]
  - Negative thoughts [Unknown]
  - Drug withdrawal syndrome [Unknown]
